FAERS Safety Report 6172174-6 (Version None)
Quarter: 2009Q2

REPORT INFORMATION
  Report Type: 
  Country: None (occurrence: None)
  Receive Date: 20090429
  Receipt Date: 20090107
  Transmission Date: 20091009
  Serious: No
  Sender: FDA-Public Use
  Company Number: A0762539A

PATIENT
  Age: 72 Year
  Sex: Male

DRUGS (4)
  1. ZOFRAN [Suspect]
     Indication: PROPHYLAXIS OF NAUSEA AND VOMITING
     Dosage: 4MG SINGLE DOSE
     Route: 065
     Dates: start: 20081231, end: 20081231
  2. LIPITOR [Concomitant]
  3. LISINOPRIL [Concomitant]
  4. BENEMID [Concomitant]
     Indication: GOUT

REACTIONS (1)
  - INSOMNIA [None]
